FAERS Safety Report 13502148 (Version 1)
Quarter: 2017Q2

REPORT INFORMATION
  Report Type: Spontaneous
  Country: US (occurrence: US)
  Receive Date: 20170502
  Receipt Date: 20170502
  Transmission Date: 20170830
  Serious: Yes (Other)
  Sender: FDA-Public Use
  Company Number: US-DRREDDYS-USA/USA/17/0086815

PATIENT
  Age: 57 Year
  Sex: Male

DRUGS (2)
  1. ZOLEDRONIC ACID. [Suspect]
     Active Substance: ZOLEDRONIC ACID
     Route: 042
  2. ZOLEDRONIC ACID. [Suspect]
     Active Substance: ZOLEDRONIC ACID
     Indication: FIBROUS DYSPLASIA OF BONE
     Route: 042

REACTIONS (1)
  - Osteonecrosis of jaw [Not Recovered/Not Resolved]
